FAERS Safety Report 4723790-7 (Version None)
Quarter: 2005Q3

REPORT INFORMATION
  Report Type: 
  Country: None (occurrence: None)
  Receive Date: 20050725
  Receipt Date: 20050713
  Transmission Date: 20060218
  Serious: Yes (Hospitalization)
  Sender: FDA-Public Use
  Company Number: PHHO2005JP11152

PATIENT
  Age: 53 Year
  Sex: Male
  Weight: 50 kg

DRUGS (2)
  1. TOFRANIL [Suspect]
     Indication: DEPRESSION
     Dosage: UNK, UNK
     Route: 048
     Dates: start: 20031120, end: 20031211
  2. LORAZEPAM [Concomitant]
     Indication: DEPRESSION
     Dates: start: 20031119, end: 20040614

REACTIONS (4)
  - ABDOMINAL DISTENSION [None]
  - BACK PAIN [None]
  - C-REACTIVE PROTEIN INCREASED [None]
  - SOMNOLENCE [None]
